FAERS Safety Report 12849210 (Version 10)
Quarter: 2017Q3

REPORT INFORMATION
  Report Type: Spontaneous
  Country: US (occurrence: US)
  Receive Date: 20161014
  Receipt Date: 20170822
  Transmission Date: 20171127
  Serious: Yes (Other)
  Sender: FDA-Public Use
  Company Number: US-PFIZER INC-2016480281

PATIENT
  Age: 62 Year
  Sex: Female
  Weight: 76.64 kg

DRUGS (10)
  1. REVATIO [Suspect]
     Active Substance: SILDENAFIL CITRATE
     Indication: CRYOGLOBULINAEMIA
     Dosage: 20 MG, 3X/DAY
     Route: 048
     Dates: start: 201101
  2. REVATIO [Suspect]
     Active Substance: SILDENAFIL CITRATE
     Dosage: 20 MG, 3X/DAY
     Route: 048
     Dates: start: 2010
  3. SINGULAIR [Concomitant]
     Active Substance: MONTELUKAST SODIUM
     Dosage: UNK
  4. SYMBICORT [Concomitant]
     Active Substance: BUDESONIDE\FORMOTEROL FUMARATE DIHYDRATE
     Dosage: UNK
  5. REVATIO [Suspect]
     Active Substance: SILDENAFIL CITRATE
     Indication: PORTOPULMONARY HYPERTENSION
     Dosage: UNK
     Dates: start: 2009
  6. REVATIO [Suspect]
     Active Substance: SILDENAFIL CITRATE
     Dosage: UNK
  7. PROGRAF [Concomitant]
     Active Substance: TACROLIMUS\TACROLIMUS ANHYDROUS
     Indication: LIVER TRANSPLANT
     Dosage: 6 MG, DAILY, (1MG IN EVENING AND 5MG IN MORNING)
     Route: 048
  8. COMBIVENT RESPIMAT [Concomitant]
     Active Substance: ALBUTEROL SULFATE\IPRATROPIUM BROMIDE
     Dosage: UNK
  9. REVATIO [Suspect]
     Active Substance: SILDENAFIL CITRATE
     Indication: PULMONARY HYPERTENSION
     Dosage: 20 MG, 3X/DAY
     Route: 048
     Dates: start: 20100329
  10. REVATIO [Suspect]
     Active Substance: SILDENAFIL CITRATE
     Dosage: UNK

REACTIONS (5)
  - Lung carcinoma cell type unspecified stage IV [Not Recovered/Not Resolved]
  - Condition aggravated [Not Recovered/Not Resolved]
  - Malaise [Not Recovered/Not Resolved]
  - Fatigue [Unknown]
  - Dyspnoea [Not Recovered/Not Resolved]
